FAERS Safety Report 12890748 (Version 2)
Quarter: 2016Q4

REPORT INFORMATION
  Report Type: Report from Study
  Country: US (occurrence: US)
  Receive Date: 20161027
  Receipt Date: 20161102
  Transmission Date: 20170207
  Serious: Yes (Death)
  Sender: FDA-Public Use
  Company Number: US-ACTELION-A-US2016-144417

PATIENT
  Age: 72 Year
  Sex: Female

DRUGS (15)
  1. UPTRAVI [Suspect]
     Active Substance: SELEXIPAG
     Indication: PULMONARY ARTERIAL HYPERTENSION
     Dosage: 1200 MCG, BID
     Route: 048
     Dates: start: 20160824, end: 201610
  2. AMBRISENTAN [Suspect]
     Active Substance: AMBRISENTAN
     Indication: PULMONARY HYPERTENSION
     Dosage: 10 MG, QD
     Route: 048
     Dates: start: 20130417, end: 20161012
  3. TRICOR [Concomitant]
     Active Substance: FENOFIBRATE
  4. GLIPIZIDE. [Concomitant]
     Active Substance: GLIPIZIDE
  5. CELEXA [Concomitant]
     Active Substance: CITALOPRAM HYDROBROMIDE
  6. SPIRONOLACTONE. [Concomitant]
     Active Substance: SPIRONOLACTONE
  7. PROTONIX [Concomitant]
     Active Substance: PANTOPRAZOLE SODIUM
  8. METFORMIN [Concomitant]
     Active Substance: METFORMIN HYDROCHLORIDE
  9. CRESTOR [Concomitant]
     Active Substance: ROSUVASTATIN CALCIUM
  10. NIFEDIPINE. [Concomitant]
     Active Substance: NIFEDIPINE
  11. LASIX [Concomitant]
     Active Substance: FUROSEMIDE
  12. SILDENAFIL. [Concomitant]
     Active Substance: SILDENAFIL
  13. PREDNISONE. [Concomitant]
     Active Substance: PREDNISONE
  14. RECLAST [Concomitant]
     Active Substance: ZOLEDRONIC ACID
  15. SINGULAIR [Concomitant]
     Active Substance: MONTELUKAST SODIUM

REACTIONS (1)
  - Death [Fatal]

NARRATIVE: CASE EVENT DATE: 201610
